FAERS Safety Report 14216602 (Version 1)
Quarter: 2017Q4

REPORT INFORMATION
  Report Type: Spontaneous
  Country: US (occurrence: US)
  Receive Date: 20171122
  Receipt Date: 20171122
  Transmission Date: 20180321
  Serious: No
  Sender: FDA-Public Use
  Company Number: US-PFIZER INC-2017497616

PATIENT
  Age: 11 Year
  Sex: Male
  Weight: 45.86 kg

DRUGS (5)
  1. CROMOLYN [Concomitant]
     Active Substance: CROMOLYN
     Dosage: UNK UNK, 2X/DAY, (20 MG/2 ML)
     Route: 055
  2. ALBUTEROL HFA [Concomitant]
     Active Substance: ALBUTEROL SULFATE
     Dosage: UNK UNK, 2X/DAY
  3. ADVAIR HFA [Concomitant]
     Active Substance: FLUTICASONE PROPIONATE\SALMETEROL XINAFOATE
     Dosage: UNK
  4. ALBUTEROL SULFATE. [Concomitant]
     Active Substance: ALBUTEROL SULFATE
     Indication: COUGH
     Dosage: UNK, 4X/DAY
  5. QUILLIVANT XR [Suspect]
     Active Substance: METHYLPHENIDATE HYDROCHLORIDE
     Dosage: TAKE 5 MILLILITERS ONCE DAILY IN THE MORNING BEFORE SCHOOL
     Route: 048

REACTIONS (3)
  - Cough [Unknown]
  - Sinusitis [Unknown]
  - Anxiety [Unknown]
